FAERS Safety Report 9350379 (Version 1)
Quarter: 2013Q2

REPORT INFORMATION
  Report Type: Spontaneous
  Country: GB (occurrence: GB)
  Receive Date: 20130617
  Receipt Date: 20130617
  Transmission Date: 20140414
  Serious: Yes (Death, Other)
  Sender: FDA-Public Use
  Company Number: GB-JNJFOC-20130603440

PATIENT
  Sex: 0

DRUGS (10)
  1. DOXORUBICIN HYDROCHLORIDE [Suspect]
     Indication: DIFFUSE LARGE B-CELL LYMPHOMA
     Dosage: SIX CYCLE OF R-CHOP-14 EVERY 14
     Route: 042
  2. CYCLOPHOSPHAMIDE [Suspect]
     Indication: DIFFUSE LARGE B-CELL LYMPHOMA
     Dosage: SIX CYCLES OF R-CHOP EVERY 14 DAYS PLUS TWO CYCLES OF RITUXIMAB (R-CHOP-14)
     Route: 042
  3. VINCRISTINE [Suspect]
     Indication: DIFFUSE LARGE B-CELL LYMPHOMA
     Dosage: EIGHT CYCLES OF R-CHOP EVERY 21 DAYS (R-CHOP-21
     Route: 065
  4. VINCRISTINE [Suspect]
     Indication: DIFFUSE LARGE B-CELL LYMPHOMA
     Dosage: SIX CYCLES OF R-CHOP EVERY 14 DAYS PLUS TWO CYCLES OF RITUXIMAB (R-CHOP-14); MAXIMUM OF 2 MG
     Route: 065
  5. RITUXIMAB [Suspect]
     Indication: DIFFUSE LARGE B-CELL LYMPHOMA
     Dosage: SIX CYCLES OF R-CHOP EVERY 14 DAYS PLUS TWO CYCLES OF RITUXIMAB (R-CHOP-14), ON DAY 1
     Route: 065
  6. PREDNISOLONE [Suspect]
     Indication: DIFFUSE LARGE B-CELL LYMPHOMA
     Dosage: EIGHT CYCLES OF R-CHOP EVERY 21 DAYS (R-CHOP-21), ON DAYS 1-5
     Route: 048
  7. PREDNISOLONE [Suspect]
     Indication: DIFFUSE LARGE B-CELL LYMPHOMA
     Dosage: RECEIVE SIX CYCLES OF R-CHOP EVERY 14 DAYS PLUS TWO CYCLES OF RITUXIMAB (R-CHOP-14), DAYS 1 TO 5
     Route: 048
  8. LENOGRASTIM [Concomitant]
     Indication: PRODUCT USED FOR UNKNOWN INDICATION
     Dosage: DAYS 4?12 OF EACH CYCLE TO PATIENTS RANDOMLY ASSIGNED TO R-CHOP-14
     Route: 065
  9. ALLOPURINOL [Concomitant]
     Indication: PRODUCT USED FOR UNKNOWN INDICATION
     Route: 065
  10. COTRIMOXAZOLE [Concomitant]
     Indication: PRODUCT USED FOR UNKNOWN INDICATION
     Route: 065

REACTIONS (13)
  - Death [Fatal]
  - Adverse drug reaction [Fatal]
  - Sepsis [Fatal]
  - Febrile neutropenia [Unknown]
  - Thrombocytopenia [Unknown]
  - Infection [Unknown]
  - Mucosal inflammation [Unknown]
  - Cardiotoxicity [Unknown]
  - Neutropenia [Unknown]
  - Disease progression [Unknown]
  - Neurotoxicity [Unknown]
  - Vomiting [Unknown]
  - Nausea [Unknown]
